FAERS Safety Report 22588242 (Version 7)
Quarter: 2023Q4

REPORT INFORMATION
  Report Type: Report from Study
  Country: CA (occurrence: CA)
  Receive Date: 20230612
  Receipt Date: 20231211
  Transmission Date: 20240110
  Serious: Yes (Other)
  Sender: FDA-Public Use
  Company Number: CA-UCBSA-2023029196

PATIENT
  Sex: Female

DRUGS (7)
  1. CERTOLIZUMAB PEGOL [Suspect]
     Active Substance: CERTOLIZUMAB PEGOL
     Indication: Psoriatic arthropathy
     Dosage: 400 MILLIGRAM, EV 2 WEEKS(QOW)
     Route: 058
     Dates: start: 20230422
  2. CERTOLIZUMAB PEGOL [Suspect]
     Active Substance: CERTOLIZUMAB PEGOL
     Dosage: 400 MILLIGRAM, EV 4 WEEKS
     Route: 058
  3. CERTOLIZUMAB PEGOL [Suspect]
     Active Substance: CERTOLIZUMAB PEGOL
     Dosage: 400 MILLIGRAM, EV 4 WEEKS
     Route: 058
     Dates: start: 20230715, end: 20231206
  4. PREDNISONE [Suspect]
     Active Substance: PREDNISONE
     Indication: Pain in extremity
     Dosage: 5 MILLIGRAM
  5. PREDNISONE [Suspect]
     Active Substance: PREDNISONE
     Dosage: 2.5 MILLIGRAM
  6. XARELTO [Suspect]
     Active Substance: RIVAROXABAN
     Indication: Anticoagulant therapy
     Dosage: 20 MILLIGRAM, ONCE DAILY (QD)
     Dates: start: 20230526, end: 2023
  7. HEPARIN [Concomitant]
     Active Substance: HEPARIN SODIUM
     Indication: Anticoagulant therapy
     Dosage: UNK
     Dates: end: 20230526

REACTIONS (15)
  - Osteomyelitis [Not Recovered/Not Resolved]
  - Fractured sacrum [Not Recovered/Not Resolved]
  - Bladder disorder [Not Recovered/Not Resolved]
  - Stress fracture [Not Recovered/Not Resolved]
  - Middle insomnia [Unknown]
  - Pain [Unknown]
  - Malaise [Unknown]
  - Mood altered [Unknown]
  - Emotional disorder [Unknown]
  - Burning sensation [Unknown]
  - Synovitis [Not Recovered/Not Resolved]
  - Therapy interrupted [Unknown]
  - Syringe issue [Unknown]
  - Therapeutic product effect incomplete [Unknown]
  - Drug ineffective [Unknown]

NARRATIVE: CASE EVENT DATE: 20230101
